FAERS Safety Report 5460944-9 (Version None)
Quarter: 2007Q3

REPORT INFORMATION
  Report Type: 
  Country: None (occurrence: None)
  Receive Date: 20070823
  Receipt Date: 20070503
  Transmission Date: 20080115
  Serious: No
  Sender: FDA-Public Use
  Company Number: SPV1-2007-02612

PATIENT
  Sex: Male
  Weight: 68 kg

DRUGS (3)
  1. FOSRENOL [Suspect]
     Indication: HYPERPHOSPHATAEMIA
     Dates: start: 20050101
  2. AVAPRO [Concomitant]
  3. CLONIDINE [Concomitant]

REACTIONS (1)
  - PIGMENTATION DISORDER [None]
